FAERS Safety Report 22208854 (Version 1)
Quarter: 2023Q2

REPORT INFORMATION
  Report Type: Spontaneous
  Country: US (occurrence: None)
  Receive Date: 20230413
  Receipt Date: 20230413
  Transmission Date: 20230722
  Serious: Yes (Disabling)
  Sender: FDA-Public Use
  Company Number: None

PATIENT
  Age: 75 Year
  Sex: Female
  Weight: 90.72 kg

DRUGS (1)
  1. METRONIDAZOLE [Suspect]
     Active Substance: METRONIDAZOLE
     Indication: Diverticulitis
     Dosage: FREQUENCY : 3 TIMES A DAY;?
     Dates: start: 20230306, end: 20230307

REACTIONS (8)
  - Dermatitis acneiform [None]
  - Rash vesicular [None]
  - Headache [None]
  - Pyrexia [None]
  - Chills [None]
  - Vasculitis [None]
  - Insurance issue [None]
  - Therapy cessation [None]

NARRATIVE: CASE EVENT DATE: 20230307
